FAERS Safety Report 8309766-1 (Version None)
Quarter: 2012Q2

REPORT INFORMATION
  Report Type: 
  Country: None (occurrence: None)
  Receive Date: 20120425
  Receipt Date: 20120417
  Transmission Date: 20120825
  Serious: Yes (Hospitalization)
  Sender: FDA-Public Use
  Company Number: PHHY2012AU033444

PATIENT
  Sex: Female

DRUGS (1)
  1. FEMARA [Suspect]
     Indication: BREAST CANCER
     Dosage: 1 DF (1 TABLET DAILY).
     Route: 048
     Dates: start: 20061201, end: 20111231

REACTIONS (3)
  - MALAISE [None]
  - NEOPLASM MALIGNANT [None]
  - GASTROINTESTINAL CARCINOMA [None]
